FAERS Safety Report 4959164-3 (Version None)
Quarter: 2006Q1

REPORT INFORMATION
  Report Type: 
  Country: None (occurrence: None)
  Receive Date: 20060330
  Receipt Date: 20060330
  Transmission Date: 20060701
  Serious: Yes (Other)
  Sender: FDA-Public Use
  Company Number: None

PATIENT
  Age: 46 Year
  Sex: Male
  Weight: 81.6475 kg

DRUGS (1)
  1. ROZEREM [Suspect]
     Indication: INSOMNIA
     Dosage: 1 TAB HS PO
     Route: 048
     Dates: start: 20060328, end: 20060329

REACTIONS (4)
  - FEELING ABNORMAL [None]
  - MIDDLE INSOMNIA [None]
  - OESOPHAGEAL DISORDER [None]
  - PRURITUS [None]
